FAERS Safety Report 13401060 (Version 2)
Quarter: 2017Q2

REPORT INFORMATION
  Report Type: Spontaneous
  Country: JP (occurrence: JP)
  Receive Date: 20170404
  Receipt Date: 20170509
  Transmission Date: 20170830
  Serious: Yes (Other)
  Sender: FDA-Public Use
  Company Number: JP-AMGEN-JPNSP2017051676

PATIENT
  Age: 7 Decade
  Sex: Female

DRUGS (5)
  1. ACTONEL [Concomitant]
     Active Substance: RISEDRONATE SODIUM
     Dosage: 17.5 MG, TOTAL 102 TIMES
     Route: 048
     Dates: start: 20100413, end: 201007
  2. PRALIA [Suspect]
     Active Substance: DENOSUMAB
     Indication: OSTEOPOROSIS
     Dosage: 60 MG, Q6MO
     Route: 058
     Dates: start: 20170106, end: 20170106
  3. ACTONEL [Concomitant]
     Active Substance: RISEDRONATE SODIUM
     Indication: OSTEOPOROSIS
     Dosage: 2.5 MG, TOTAL 378 TIMES
     Route: 048
     Dates: start: 20090331, end: 20100412
  4. PROGRAF [Concomitant]
     Active Substance: TACROLIMUS\TACROLIMUS ANHYDROUS
     Indication: RHEUMATOID ARTHRITIS
     Dosage: 0.5 MG, UNK
     Route: 048
     Dates: start: 20160926
  5. PREDONINE [Concomitant]
     Active Substance: PREDNISOLONE
     Dosage: 7.5 MG, QD
     Route: 048

REACTIONS (1)
  - Osteonecrosis of jaw [Not Recovered/Not Resolved]

NARRATIVE: CASE EVENT DATE: 20170322
